FAERS Safety Report 21239308 (Version 1)
Quarter: 2022Q3

REPORT INFORMATION
  Report Type: Spontaneous
  Country: US (occurrence: None)
  Receive Date: 20220819
  Receipt Date: 20220819
  Transmission Date: 20221027
  Serious: Yes (Other)
  Sender: FDA-Public Use
  Company Number: None

PATIENT
  Age: 75 Year
  Sex: Male
  Weight: 92.25 kg

DRUGS (24)
  1. OMEPRAZOLE [Suspect]
     Active Substance: OMEPRAZOLE
     Indication: Gastrooesophageal reflux disease
     Route: 048
     Dates: start: 20220815, end: 20220816
  2. Insulin (via pump) [Concomitant]
  3. NOVOLOG [Concomitant]
     Active Substance: INSULIN ASPART
  4. RAMIPRIL [Concomitant]
     Active Substance: RAMIPRIL
  5. SYNTHROID [Concomitant]
     Active Substance: LEVOTHYROXINE SODIUM
  6. OMEPRAZOLE [Concomitant]
     Active Substance: OMEPRAZOLE
  7. LIPITOR [Concomitant]
     Active Substance: ATORVASTATIN CALCIUM
  8. METOPROLOL TARTRATE [Concomitant]
     Active Substance: METOPROLOL TARTRATE
  9. ASPIRIN [Concomitant]
     Active Substance: ASPIRIN
  10. TOPIRAMATE [Concomitant]
     Active Substance: TOPIRAMATE
  11. RANEXA [Concomitant]
     Active Substance: RANOLAZINE
  12. METOZOLV ODT [Concomitant]
     Active Substance: METOCLOPRAMIDE HYDROCHLORIDE
  13. DEVICE [Concomitant]
     Active Substance: DEVICE
  14. PREGABALIN [Concomitant]
     Active Substance: PREGABALIN
  15. FLUTICASONE PROPIONATE [Concomitant]
     Active Substance: FLUTICASONE PROPIONATE
  16. ISOSORBIDE MONONITRATE [Concomitant]
     Active Substance: ISOSORBIDE MONONITRATE
  17. TRULANCE [Concomitant]
     Active Substance: PLECANATIDE
  18. NitriQuick [Concomitant]
  19. Align (Probiotic) [Concomitant]
  20. MINERALS\VITAMINS [Concomitant]
     Active Substance: MINERALS\VITAMINS
  21. OCUVITE [Concomitant]
     Active Substance: VITAMINS
  22. OMEGA 3 [Concomitant]
     Active Substance: CAPSAICIN
  23. PEPPERMINT OIL [Concomitant]
     Active Substance: PEPPERMINT OIL
  24. ROGAINE [Concomitant]
     Active Substance: MINOXIDIL

REACTIONS (6)
  - Chest pain [None]
  - Eructation [None]
  - Oral pain [None]
  - Abdominal pain upper [None]
  - Product substitution issue [None]
  - Insurance issue [None]

NARRATIVE: CASE EVENT DATE: 20220816
